FAERS Safety Report 8808648 (Version 1)
Quarter: 2012Q4

REPORT INFORMATION
  Report Type: 
  Country: CA (occurrence: CA)
  Receive Date: 20120926
  Receipt Date: 20120926
  Transmission Date: 20130627
  Serious: Yes (Other)
  Sender: FDA-Public Use
  Company Number: PHHY2012CA082662

PATIENT
  Age: 65 Year
  Sex: Male
  Weight: 129.25 kg

DRUGS (1)
  1. ZOMETA [Suspect]

REACTIONS (2)
  - Glomerular filtration rate increased [Unknown]
  - Blood creatine abnormal [Unknown]
